FAERS Safety Report 10803137 (Version 6)
Quarter: 2015Q4

REPORT INFORMATION
  Report Type: Report from Study
  Country: KR (occurrence: KR)
  Receive Date: 20150217
  Receipt Date: 20151201
  Transmission Date: 20160304
  Serious: Yes (Other)
  Sender: FDA-Public Use
  Company Number: PHHY2015KR016287

PATIENT
  Age: 47 Year
  Sex: Male

DRUGS (8)
  1. URSA [Concomitant]
     Indication: HEPATITIS ALCOHOLIC
     Dosage: UNK
     Route: 065
     Dates: end: 2015
  2. TASIGNA [Suspect]
     Active Substance: NILOTINIB
     Indication: CHRONIC MYELOID LEUKAEMIA
     Dosage: 300 MG, BID
     Route: 048
     Dates: start: 20141027
  3. FAMOTIDINE. [Concomitant]
     Active Substance: FAMOTIDINE
     Indication: CHRONIC GASTRITIS
     Dosage: UNK,PRN
     Route: 048
  4. LIVERA [Concomitant]
     Indication: CHRONIC GASTRITIS
     Dosage: UNK UNK, PRN
     Route: 048
  5. GODEX [Concomitant]
     Indication: HEPATITIS ALCOHOLIC
     Dosage: UNK
     Route: 048
     Dates: end: 2015
  6. XALATAN [Concomitant]
     Active Substance: LATANOPROST
     Indication: OCULAR HYPERTENSION
     Dosage: UNK
     Route: 048
     Dates: end: 2015
  7. SYNTHROID [Concomitant]
     Active Substance: LEVOTHYROXINE SODIUM
     Indication: HYPOTHYROIDISM
     Dosage: QD
     Route: 048
  8. REMIST [Concomitant]
     Indication: CHRONIC GASTRITIS
     Dosage: UNK UNK, PRN
     Route: 048

REACTIONS (10)
  - Anal abscess [Recovering/Resolving]
  - Noninfective gingivitis [Recovered/Resolved]
  - Musculoskeletal stiffness [Not Recovered/Not Resolved]
  - Blood cholesterol increased [Not Recovered/Not Resolved]
  - Chest pain [Recovered/Resolved]
  - Anal abscess [Recovered/Resolved]
  - Alopecia [Recovering/Resolving]
  - Paraesthesia [Not Recovered/Not Resolved]
  - Concomitant disease aggravated [Recovered/Resolved]
  - Urticaria [Not Recovered/Not Resolved]

NARRATIVE: CASE EVENT DATE: 201502
